FAERS Safety Report 10153791 (Version 1)
Quarter: 2014Q2

REPORT INFORMATION
  Report Type: Spontaneous
  Country: US (occurrence: US)
  Receive Date: 20140506
  Receipt Date: 20140506
  Transmission Date: 20141212
  Serious: No
  Sender: FDA-Public Use
  Company Number: US-BIOGENIDEC-2014BI041086

PATIENT
  Age: 32 Year
  Sex: Female

DRUGS (1)
  1. AVONEX [Suspect]
     Indication: MULTIPLE SCLEROSIS
     Route: 030
     Dates: start: 20130814

REACTIONS (3)
  - Lower extremity mass [Not Recovered/Not Resolved]
  - Injection site haemorrhage [Recovered/Resolved]
  - Pruritus [Not Recovered/Not Resolved]
